FAERS Safety Report 8287202-1 (Version None)
Quarter: 2012Q2

REPORT INFORMATION
  Report Type: 
  Country: None (occurrence: None)
  Receive Date: 20120416
  Receipt Date: 20120406
  Transmission Date: 20120825
  Serious: Yes (Hospitalization, Other)
  Sender: FDA-Public Use
  Company Number: US-BAYER-2012-013095

PATIENT
  Age: 35 Year
  Sex: Female
  Weight: 74.83 kg

DRUGS (4)
  1. AMBIEN CR [Concomitant]
     Dosage: 6.25 MG, HS
     Route: 048
     Dates: start: 20060327
  2. ANTIBIOTICS [Concomitant]
  3. ANTIMIGRAINE PREPARATIONS [Concomitant]
  4. YASMIN [Suspect]
     Indication: ENDOMETRIOSIS
     Dosage: UNK
     Route: 048
     Dates: start: 20060601, end: 20060701

REACTIONS (4)
  - INJURY [None]
  - ABORTION SPONTANEOUS [None]
  - MENTAL DISORDER [None]
  - DEEP VEIN THROMBOSIS [None]
